APPROVED DRUG PRODUCT: ESTROPIPATE
Active Ingredient: ESTROPIPATE
Strength: 0.75MG
Dosage Form/Route: TABLET;ORAL
Application: A040296 | Product #001
Applicant: DURAMED PHARMACEUTICALS INC SUB BARR LABORATORIES INC
Approved: Nov 1, 1999 | RLD: No | RS: No | Type: DISCN